FAERS Safety Report 8548303-3 (Version None)
Quarter: 2012Q3

REPORT INFORMATION
  Report Type: 
  Country: None (occurrence: None)
  Receive Date: 20120717
  Receipt Date: 20120702
  Transmission Date: 20120928
  Serious: Yes (Hospitalization, Disabling, Other)
  Sender: FDA-Public Use
  Company Number: 2010MA003018

PATIENT
  Sex: Female
  Weight: 65.7716 kg

DRUGS (8)
  1. ALBUTEROL [Concomitant]
  2. CARISOPRODOL [Concomitant]
  3. BIAXIN [Concomitant]
  4. METOCLOPRAMIDE [Suspect]
     Indication: GASTROOESOPHAGEAL REFLUX DISEASE
     Dosage: 10 MG; AC; PO
     Route: 048
     Dates: start: 20070712, end: 20100301
  5. METOCLOPRAMIDE [Suspect]
     Indication: NAUSEA
     Dosage: 10 MG; AC; PO
     Route: 048
     Dates: start: 20070712, end: 20100301
  6. ATORVASTATIN [Concomitant]
  7. AMITRIPTLINE HYDROCHLORIDE TAB [Concomitant]
  8. CARVEDILOL [Concomitant]

REACTIONS (79)
  - CHEST PAIN [None]
  - HYPOTENSION [None]
  - MUSCULOSKELETAL PAIN [None]
  - LOSS OF CONSCIOUSNESS [None]
  - SYNCOPE [None]
  - DIARRHOEA [None]
  - ECONOMIC PROBLEM [None]
  - OSTEOARTHRITIS [None]
  - BLOOD PRESSURE INADEQUATELY CONTROLLED [None]
  - DISTURBANCE IN ATTENTION [None]
  - MYOCARDIAL INFARCTION [None]
  - INTERVERTEBRAL DISC DISORDER [None]
  - TRANSIENT ISCHAEMIC ATTACK [None]
  - TREATMENT NONCOMPLIANCE [None]
  - CONSTIPATION [None]
  - CONTUSION [None]
  - ASTHENIA [None]
  - HYPERTENSION [None]
  - HYPERLIPIDAEMIA [None]
  - SPINAL OSTEOARTHRITIS [None]
  - CONFUSIONAL STATE [None]
  - IMPAIRED GASTRIC EMPTYING [None]
  - WEIGHT DECREASED [None]
  - PEPTIC ULCER [None]
  - HEADACHE [None]
  - CHRONIC OBSTRUCTIVE PULMONARY DISEASE [None]
  - ARACHNOID CYST [None]
  - CORONARY ARTERY DISEASE [None]
  - INTERVERTEBRAL DISC DEGENERATION [None]
  - GAIT DISTURBANCE [None]
  - ELECTROLYTE IMBALANCE [None]
  - IMPAIRED SELF-CARE [None]
  - ABDOMINAL PAIN [None]
  - VOMITING [None]
  - BACK PAIN [None]
  - MIGRAINE [None]
  - CHEST INJURY [None]
  - DEHYDRATION [None]
  - INTERVERTEBRAL DISC SPACE NARROWING [None]
  - LIMB INJURY [None]
  - EPILEPSY [None]
  - NAUSEA [None]
  - HELICOBACTER GASTRITIS [None]
  - PERIPHERAL VASCULAR DISORDER [None]
  - CARDIAC FAILURE CONGESTIVE [None]
  - VAGINAL INFECTION [None]
  - DYSPEPSIA [None]
  - OSTEOPENIA [None]
  - IRON DEFICIENCY ANAEMIA [None]
  - HYPOKALAEMIA [None]
  - DEMENTIA [None]
  - DIARRHOEA HAEMORRHAGIC [None]
  - GASTRITIS [None]
  - GASTROOESOPHAGEAL REFLUX DISEASE [None]
  - INSOMNIA [None]
  - SINUSITIS [None]
  - MEMORY IMPAIRMENT [None]
  - FACIAL PARESIS [None]
  - VENTRICULAR EXTRASYSTOLES [None]
  - ARRHYTHMIA [None]
  - MIGRAINE WITH AURA [None]
  - PALLOR [None]
  - HEPATIC ENZYME INCREASED [None]
  - MUSCLE SPASMS [None]
  - WALKING AID USER [None]
  - DYSPHAGIA [None]
  - EMOTIONAL DISORDER [None]
  - BILIARY DILATATION [None]
  - ANAEMIA [None]
  - TOBACCO ABUSE [None]
  - DEPRESSION [None]
  - TINNITUS [None]
  - FALL [None]
  - GLAUCOMA [None]
  - CONDITION AGGRAVATED [None]
  - SCIATICA [None]
  - DYSGEUSIA [None]
  - FIBROMYALGIA [None]
  - TREMOR [None]
